FAERS Safety Report 12356941 (Version 1)
Quarter: 2016Q2

REPORT INFORMATION
  Report Type: Spontaneous
  Country: US (occurrence: US)
  Receive Date: 20160511
  Receipt Date: 20160511
  Transmission Date: 20160815
  Serious: No
  Sender: FDA-Public Use
  Company Number: US-PFIZER INC-2016248242

PATIENT
  Age: 55 Year
  Sex: Female
  Weight: 59.42 kg

DRUGS (4)
  1. CHANTIX [Suspect]
     Active Substance: VARENICLINE TARTRATE
     Dosage: 1 MG, 2X/DAY (ONCE IN THE MORNING AND ONCE IN THE EVENING, DAY 8)
     Route: 048
     Dates: start: 2016, end: 2016
  2. CHANTIX [Suspect]
     Active Substance: VARENICLINE TARTRATE
     Dosage: 0.5 MG, 2X/DAY (ONCE IN THE MORNING AND ONCE IN THE EVENING, DAYS 4-7)
     Route: 048
     Dates: start: 2016, end: 2016
  3. CHANTIX [Suspect]
     Active Substance: VARENICLINE TARTRATE
     Dosage: 0.5 MG, 1X/DAY (ONCE IN THE MORNING, DAYS 1-3)
     Route: 048
     Dates: start: 2016, end: 2016
  4. CHANTIX [Suspect]
     Active Substance: VARENICLINE TARTRATE
     Indication: SMOKING CESSATION THERAPY
     Dosage: UNK
     Route: 048

REACTIONS (4)
  - Nightmare [Recovered/Resolved]
  - Drug ineffective [Unknown]
  - Disorganised speech [Recovered/Resolved]
  - Abnormal dreams [Recovered/Resolved]
